FAERS Safety Report 6716470-X (Version None)
Quarter: 2010Q2

REPORT INFORMATION
  Report Type: 
  Country: None (occurrence: None)
  Receive Date: 20100507
  Receipt Date: 20100427
  Transmission Date: 20101027
  Serious: Yes (Other)
  Sender: FDA-Public Use
  Company Number: PHHY2010US28093

PATIENT
  Sex: Female

DRUGS (1)
  1. MYFORTIC [Suspect]

REACTIONS (3)
  - OROPHARYNGEAL PAIN [None]
  - ROAD TRAFFIC ACCIDENT [None]
  - TRACHEOSTOMY [None]
